FAERS Safety Report 10120877 (Version 1)
Quarter: 2014Q2

REPORT INFORMATION
  Report Type: Spontaneous
  Country: DE (occurrence: DE)
  Receive Date: 20140425
  Receipt Date: 20140425
  Transmission Date: 20141212
  Serious: Yes (Life-Threatening)
  Sender: FDA-Public Use
  Company Number: DE-TEVA-477092GER

PATIENT
  Age: 62 Year
  Sex: Female

DRUGS (5)
  1. OLANZAPINE [Suspect]
     Indication: BIPOLAR DISORDER
     Dosage: 40 MG
     Route: 065
  2. AMISULPRIDE [Suspect]
     Indication: BIPOLAR DISORDER
     Dosage: 1600 MG
     Route: 065
  3. BENPERIDOL [Suspect]
     Indication: BIPOLAR DISORDER
     Dosage: 68 MG
     Route: 065
  4. LITHIUM [Concomitant]
     Indication: BIPOLAR DISORDER
     Dosage: 675 MG
     Route: 065
  5. BIPERIDEN [Concomitant]
     Indication: BIPOLAR DISORDER
     Dosage: 4 MG
     Route: 065

REACTIONS (3)
  - Ventricular arrhythmia [Recovered/Resolved]
  - Electrocardiogram QT prolonged [Recovered/Resolved]
  - Torsade de pointes [Recovered/Resolved]
